FAERS Safety Report 8520901-2 (Version None)
Quarter: 2012Q3

REPORT INFORMATION
  Report Type: 
  Country: None (occurrence: None)
  Receive Date: 20120712
  Receipt Date: 20120712
  Transmission Date: 20120928
  Serious: Yes (Other)
  Sender: FDA-Public Use
  Company Number: None

PATIENT
  Sex: Female

DRUGS (2)
  1. SULFAMETHOXAZOLE [Suspect]
     Indication: SKIN INFECTION
     Dosage: 2 A DAY PO
     Route: 048
  2. SULFAMETHOXAZOLE [Suspect]
     Indication: SCRATCH
     Dosage: 2 A DAY PO
     Route: 048

REACTIONS (3)
  - INFLUENZA LIKE ILLNESS [None]
  - PAIN [None]
  - PYREXIA [None]
